FAERS Safety Report 25494595 (Version 1)
Quarter: 2025Q2

REPORT INFORMATION
  Report Type: Spontaneous
  Country: US (occurrence: US)
  Receive Date: 20250630
  Receipt Date: 20250630
  Transmission Date: 20250716
  Serious: Yes (Death, Hospitalization)
  Sender: MYLAN
  Company Number: US-MYLANLABS-2025M1055069

PATIENT
  Age: 64 Year
  Sex: Female

DRUGS (14)
  1. AMLODIPINE [Interacting]
     Active Substance: AMLODIPINE BESYLATE
     Indication: Product used for unknown indication
  2. AMLODIPINE [Interacting]
     Active Substance: AMLODIPINE BESYLATE
     Route: 065
  3. AMLODIPINE [Interacting]
     Active Substance: AMLODIPINE BESYLATE
     Route: 065
  4. AMLODIPINE [Interacting]
     Active Substance: AMLODIPINE BESYLATE
  5. APIXABAN [Interacting]
     Active Substance: APIXABAN
     Indication: Product used for unknown indication
  6. APIXABAN [Interacting]
     Active Substance: APIXABAN
     Route: 065
  7. APIXABAN [Interacting]
     Active Substance: APIXABAN
     Route: 065
  8. APIXABAN [Interacting]
     Active Substance: APIXABAN
  9. TORSEMIDE [Interacting]
     Active Substance: TORSEMIDE
     Indication: Product used for unknown indication
  10. TORSEMIDE [Interacting]
     Active Substance: TORSEMIDE
     Route: 065
  11. TORSEMIDE [Interacting]
     Active Substance: TORSEMIDE
     Route: 065
  12. TORSEMIDE [Interacting]
     Active Substance: TORSEMIDE
  13. SERTRALINE [Concomitant]
     Active Substance: SERTRALINE HYDROCHLORIDE
     Indication: Depression
     Dosage: UNK, HS (AT BEDTIME)
     Route: 048
  14. SERTRALINE [Concomitant]
     Active Substance: SERTRALINE HYDROCHLORIDE
     Dosage: UNK, HS (AT BEDTIME)

REACTIONS (7)
  - Intentional overdose [Fatal]
  - Completed suicide [Fatal]
  - Toxicity to various agents [Fatal]
  - Drug interaction [Fatal]
  - Acute kidney injury [Fatal]
  - Haemodynamic instability [Fatal]
  - Dizziness [Unknown]
